FAERS Safety Report 4559213-0 (Version None)
Quarter: 2005Q1

REPORT INFORMATION
  Report Type: 
  Country: None (occurrence: None)
  Receive Date: 20050121
  Receipt Date: 20050121
  Transmission Date: 20050727
  Serious: No
  Sender: FDA-Public Use
  Company Number: None

PATIENT
  Sex: Male
  Weight: 29.2 kg

DRUGS (2)
  1. CONCERTA [Suspect]
     Indication: ATTENTION DEFICIT/HYPERACTIVITY DISORDER
     Dosage: 54 MG    Q DAY   ORAL
     Route: 048
     Dates: start: 20020101, end: 20040801
  2. STRATTERA [Suspect]
     Indication: ATTENTION DEFICIT/HYPERACTIVITY DISORDER
     Dosage: 10 MG   Q DAY  ORAL
     Route: 048
     Dates: start: 20040901, end: 20050117

REACTIONS (2)
  - ANAEMIA [None]
  - JAUNDICE [None]
